FAERS Safety Report 4745998-7 (Version None)
Quarter: 2005Q3

REPORT INFORMATION
  Report Type: 
  Country: None (occurrence: None)
  Receive Date: 20050816
  Receipt Date: 20050801
  Transmission Date: 20060218
  Serious: Yes (Other)
  Sender: FDA-Public Use
  Company Number: US-MERCK-0508USA00931

PATIENT
  Age: 56 Year
  Sex: Male

DRUGS (2)
  1. VIOXX [Suspect]
     Route: 048
     Dates: start: 20000101, end: 20001001
  2. VIOXX [Suspect]
     Route: 048
     Dates: start: 20010201, end: 20010301

REACTIONS (7)
  - ADVERSE EVENT [None]
  - ATHEROSCLEROSIS [None]
  - CEREBROVASCULAR ACCIDENT [None]
  - CORONARY ARTERY DISEASE [None]
  - MYOCARDIAL INFARCTION [None]
  - THROMBOSIS [None]
  - TRANSIENT ISCHAEMIC ATTACK [None]
